FAERS Safety Report 8453759-0 (Version None)
Quarter: 2012Q2

REPORT INFORMATION
  Report Type: 
  Country: None (occurrence: None)
  Receive Date: 20120620
  Receipt Date: 20120607
  Transmission Date: 20120825
  Serious: No
  Sender: FDA-Public Use
  Company Number: US-ASTRAZENECA-2012SE24216

PATIENT
  Age: 57 Year
  Sex: Male
  Weight: 77.1 kg

DRUGS (5)
  1. SYMBICORT [Suspect]
     Indication: DYSPNOEA
     Dosage: 2 PUFFS 160/4.5 MCG, TWO TIMES A DAY
     Route: 055
  2. PROAIR HFA [Concomitant]
  3. SYMBICORT [Suspect]
     Indication: CHRONIC OBSTRUCTIVE PULMONARY DISEASE
     Dosage: 2 PUFFS 160/4.5 MCG, TWO TIMES A DAY
     Route: 055
  4. HYDROCODONE [Concomitant]
     Indication: ANALGESIC THERAPY
  5. VALIUM [Concomitant]
     Indication: SEDATION

REACTIONS (3)
  - ADVERSE EVENT [None]
  - INTENTIONAL DRUG MISUSE [None]
  - DYSPNOEA [None]
